FAERS Safety Report 23016163 (Version 1)
Quarter: 2023Q4

REPORT INFORMATION
  Report Type: Spontaneous
  Country: CN (occurrence: CN)
  Receive Date: 20231002
  Receipt Date: 20231002
  Transmission Date: 20240109
  Serious: Yes (Life-Threatening, Hospitalization)
  Sender: FDA-Public Use
  Company Number: CN-Eisai Medical Research-EC-2023-149951

PATIENT
  Age: 46 Year
  Sex: Female
  Weight: 50 kg

DRUGS (4)
  1. HALAVEN [Suspect]
     Active Substance: ERIBULIN MESYLATE
     Indication: Nasopharyngeal cancer
     Route: 041
     Dates: start: 2023
  2. CARBOPLATIN [Suspect]
     Active Substance: CARBOPLATIN
     Indication: Nasopharyngeal cancer
     Route: 041
     Dates: start: 2023
  3. BEVACIZUMAB [Suspect]
     Active Substance: BEVACIZUMAB
     Indication: Nasopharyngeal cancer
     Route: 041
     Dates: start: 2023
  4. TORIPALIMAB [Suspect]
     Active Substance: TORIPALIMAB
     Indication: Nasopharyngeal cancer
     Route: 041
     Dates: start: 2023

REACTIONS (1)
  - Myelosuppression [Recovering/Resolving]

NARRATIVE: CASE EVENT DATE: 20230815
